FAERS Safety Report 8698584 (Version 2)
Quarter: 2012Q4

REPORT INFORMATION
  Report Type: 
  Country: SE (occurrence: SE)
  Receive Date: 20120802
  Receipt Date: 20120918
  Transmission Date: 20130627
  Serious: Yes (Other)
  Sender: FDA-Public Use
  Company Number: SE-BAYER-2012-077008

PATIENT
  Age: 39 Year
  Sex: Female

DRUGS (2)
  1. QLAIRA [Suspect]
     Dosage: UNK
     Route: 048
     Dates: start: 201202, end: 2012
  2. LAMICTAL [Interacting]
     Indication: EPILEPSY
     Dosage: UNK
     Dates: start: 2001

REACTIONS (1)
  - Epilepsy [None]
